FAERS Safety Report 8162044-6 (Version None)
Quarter: 2012Q1

REPORT INFORMATION
  Report Type: 
  Country: None (occurrence: None)
  Receive Date: 20120224
  Receipt Date: 20110518
  Transmission Date: 20120608
  Serious: No
  Sender: FDA-Public Use
  Company Number: US-BRISTOL-MYERS SQUIBB COMPANY-15760796

PATIENT
  Sex: Female

DRUGS (1)
  1. METFORMIN HCL [Suspect]
     Dosage: THERAPY STARTED AROUND 2002
     Route: 048
     Dates: end: 20110425

REACTIONS (2)
  - DIZZINESS [None]
  - PRESYNCOPE [None]
